FAERS Safety Report 9526348 (Version 1)
Quarter: 2013Q3

REPORT INFORMATION
  Report Type: Spontaneous
  Country: None (occurrence: US)
  Receive Date: 20130916
  Receipt Date: 20130916
  Transmission Date: 20140515
  Serious: No
  Sender: FDA-Public Use
  Company Number: US-TEVA-432734USA

PATIENT
  Sex: 0

DRUGS (1)
  1. TREANDA [Suspect]
     Indication: PRODUCT USED FOR UNKNOWN INDICATION
     Route: 042
     Dates: start: 20130906, end: 20130906

REACTIONS (1)
  - Incorrect drug administration duration [Unknown]
